FAERS Safety Report 8133771-1 (Version None)
Quarter: 2012Q1

REPORT INFORMATION
  Report Type: 
  Country: None (occurrence: None)
  Receive Date: 20120213
  Receipt Date: 20120213
  Transmission Date: 20120608
  Serious: Yes (Hospitalization)
  Sender: FDA-Public Use
  Company Number: None

PATIENT
  Age: 47 Year
  Sex: Male
  Weight: 81.646 kg

DRUGS (1)
  1. GAMMAGARD [Suspect]
     Indication: POLYNEUROPATHY
     Dosage: 55G/DAY X 3 DAYS
     Route: 042
     Dates: start: 20120207, end: 20120209

REACTIONS (3)
  - BLOOD PRESSURE INCREASED [None]
  - NAUSEA [None]
  - CHILLS [None]
